FAERS Safety Report 4556215-5 (Version None)
Quarter: 2005Q1

REPORT INFORMATION
  Report Type: 
  Country: None (occurrence: None)
  Receive Date: 20050119
  Receipt Date: 20050117
  Transmission Date: 20050727
  Serious: Yes (Disabling)
  Sender: FDA-Public Use
  Company Number: CH-MERCK-0501CHE00012

PATIENT
  Age: 45 Year
  Sex: Male
  Weight: 84 kg

DRUGS (4)
  1. SINGULAIR [Suspect]
     Indication: ASTHMA
     Route: 048
     Dates: start: 20040616, end: 20040731
  2. TIOTROPIUM BROMIDE [Concomitant]
     Indication: ASTHMA
     Route: 055
     Dates: start: 20030601
  3. FORMOTEROL FUMARATE [Concomitant]
     Indication: ASTHMA
     Route: 055
  4. FLUTICASONE PROPIONATE [Concomitant]
     Indication: ASTHMA
     Route: 055

REACTIONS (1)
  - ERECTILE DYSFUNCTION [None]
